FAERS Safety Report 7198273-8 (Version None)
Quarter: 2010Q4

REPORT INFORMATION
  Report Type: 
  Country: None (occurrence: None)
  Receive Date: 20101209
  Receipt Date: 20101201
  Transmission Date: 20110411
  Serious: Yes (Other)
  Sender: FDA-Public Use
  Company Number: 2010SP063300

PATIENT
  Age: 8 Year
  Sex: Female
  Weight: 22 kg

DRUGS (6)
  1. VECURONIUM BROMIDE [Suspect]
     Indication: NEUROMUSCULAR BLOCKING THERAPY
  2. SEVOFLURANE [Suspect]
     Indication: INDUCTION OF ANAESTHESIA
  3. SEVOFLURANE [Suspect]
     Indication: POSTOPERATIVE ANALGESIA
  4. FENTANYL [Suspect]
     Indication: INDUCTION OF ANAESTHESIA
  5. FENTANYL [Suspect]
     Indication: POSTOPERATIVE ANALGESIA
  6. REMIFENTANIL [Suspect]
     Indication: MAINTENANCE OF ANAESTHESIA

REACTIONS (3)
  - JOINT DISLOCATION [None]
  - TORTICOLLIS [None]
  - TRISMUS [None]
